FAERS Safety Report 7988092-4 (Version None)
Quarter: 2011Q4

REPORT INFORMATION
  Report Type: 
  Country: None (occurrence: None)
  Receive Date: 20111216
  Receipt Date: 20110603
  Transmission Date: 20120403
  Serious: No
  Sender: FDA-Public Use
  Company Number: US-BRISTOL-MYERS SQUIBB COMPANY-15803042

PATIENT
  Age: 3 Decade
  Sex: Male

DRUGS (1)
  1. ABILIFY [Suspect]
     Indication: SCHIZOAFFECTIVE DISORDER
     Dosage: INITIALLY GIVEN 15MG,THEN INCREASED TO 30MG

REACTIONS (2)
  - MUSCULOSKELETAL STIFFNESS [None]
  - COGWHEEL RIGIDITY [None]
